FAERS Safety Report 5669270-6 (Version None)
Quarter: 2008Q1

REPORT INFORMATION
  Report Type: 
  Country: None (occurrence: None)
  Receive Date: 20080313
  Receipt Date: 20080313
  Transmission Date: 20080703
  Serious: Yes (Hospitalization)
  Sender: FDA-Public Use
  Company Number: None

PATIENT
  Age: 62 Year
  Sex: Female
  Weight: 79.3795 kg

DRUGS (2)
  1. CYMBALTA [Suspect]
     Indication: ARTHRITIS
     Dosage: BEGAN W/30 MG. ONCE-A-DAY PO; INCREASED TO 60 MG. ONCE-A-DAY PO
     Route: 048
     Dates: start: 20080101, end: 20080308
  2. CYMBALTA [Suspect]
     Indication: FIBROMYALGIA
     Dosage: BEGAN W/30 MG. ONCE-A-DAY PO; INCREASED TO 60 MG. ONCE-A-DAY PO
     Route: 048
     Dates: start: 20080101, end: 20080308

REACTIONS (9)
  - DIPLOPIA [None]
  - FATIGUE [None]
  - GASTROINTESTINAL DISORDER [None]
  - HEADACHE [None]
  - INFLUENZA LIKE ILLNESS [None]
  - LOSS OF EMPLOYMENT [None]
  - MALAISE [None]
  - VERTIGO [None]
  - WITHDRAWAL SYNDROME [None]
